FAERS Safety Report 9109656 (Version 1)
Quarter: 2013Q1

REPORT INFORMATION
  Report Type: Report from Study
  Country: LB (occurrence: LB)
  Receive Date: 20130222
  Receipt Date: 20130222
  Transmission Date: 20140127
  Serious: Yes (Hospitalization)
  Sender: FDA-Public Use
  Company Number: LB-SANOFI-AVENTIS-2013SA014980

PATIENT
  Age: 80 Year
  Sex: Female

DRUGS (9)
  1. LANTUS SOLOSTAR [Suspect]
     Indication: DIABETES MELLITUS
     Dosage: DOSE:10 UNIT(S)
     Route: 058
     Dates: start: 201301
  2. SOLOSTAR [Suspect]
     Indication: DEVICE THERAPY
     Dates: start: 201301
  3. PRAXILENE [Concomitant]
     Route: 048
  4. NEFAZAN [Concomitant]
     Route: 048
  5. TRENTAL [Concomitant]
     Route: 048
  6. LISOPRESS [Concomitant]
     Route: 048
  7. ORAL ANTIDIABETICS [Concomitant]
     Route: 048
  8. OMEPRAZOLE [Concomitant]
     Route: 048
  9. CYNT [Concomitant]
     Route: 048

REACTIONS (2)
  - General physical health deterioration [Not Recovered/Not Resolved]
  - Generalised oedema [Not Recovered/Not Resolved]
